FAERS Safety Report 6123181-0 (Version None)
Quarter: 2009Q1

REPORT INFORMATION
  Report Type: 
  Country: None (occurrence: None)
  Receive Date: 20090318
  Receipt Date: 20090310
  Transmission Date: 20090719
  Serious: Yes (Hospitalization)
  Sender: FDA-Public Use
  Company Number: PHHY2008DE26919

PATIENT
  Sex: Female

DRUGS (5)
  1. VOLTAREN [Suspect]
     Indication: PAIN
     Dosage: 25 MG/DAY
     Route: 048
     Dates: start: 20081003
  2. VOLTAREN [Suspect]
     Indication: HEADACHE
  3. VOLTAREN [Suspect]
     Indication: MIGRAINE
  4. COTRIM [Concomitant]
     Indication: CYSTITIS
     Dosage: UNK
     Route: 048
  5. CRANBERRY DRUG [Concomitant]
     Indication: CYSTITIS
     Dosage: UNK

REACTIONS (7)
  - ABDOMINAL PAIN UPPER [None]
  - BACK PAIN [None]
  - DIARRHOEA [None]
  - GASTROENTERITIS [None]
  - HEPATIC STEATOSIS [None]
  - HEPATITIS VIRAL [None]
  - NAUSEA [None]
